FAERS Safety Report 8560042 (Version 7)
Quarter: 2013Q3

REPORT INFORMATION
  Report Type: Report from Study
  Country: DE (occurrence: DE)
  Receive Date: 20120514
  Receipt Date: 20130920
  Transmission Date: 20140515
  Serious: Yes (Other)
  Sender: FDA-Public Use
  Company Number: PHHY2012DE039563

PATIENT
  Age: 54 Year
  Sex: Female

DRUGS (2)
  1. EXTAVIA [Suspect]
     Indication: MULTIPLE SCLEROSIS
     Dosage: 250 UG, QOD
     Route: 058
     Dates: start: 20111118
  2. FAMPYRA [Concomitant]
     Dosage: UNK UKN, UNK
     Dates: start: 201204

REACTIONS (5)
  - Food allergy [Recovered/Resolved]
  - Pruritus generalised [Recovered/Resolved]
  - Lip swelling [Recovered/Resolved]
  - Urinary tract infection [Not Recovered/Not Resolved]
  - Fatigue [Not Recovered/Not Resolved]
